FAERS Safety Report 13793228 (Version 3)
Quarter: 2021Q3

REPORT INFORMATION
  Report Type: Report from Study
  Country: DE (occurrence: DE)
  Receive Date: 20170726
  Receipt Date: 20210716
  Transmission Date: 20211014
  Serious: Yes (Hospitalization, Congenital Anomaly)
  Sender: FDA-Public Use
  Company Number: DE-BIOGEN-2017BI00436501

PATIENT
  Age: 0 Day
  Sex: Female

DRUGS (12)
  1. AVONEX PEN [Suspect]
     Active Substance: INTERFERON BETA-1A
  2. LAMTRIGIN [Concomitant]
     Indication: MATERNAL EXPOSURE TIMING UNSPECIFIED
     Route: 064
  3. AVONEX [Suspect]
     Active Substance: INTERFERON BETA-1A
     Indication: MATERNAL EXPOSURE TIMING UNSPECIFIED
     Route: 064
     Dates: start: 20130601, end: 20150910
  4. AVONEX PEN [Suspect]
     Active Substance: INTERFERON BETA-1A
     Indication: MATERNAL EXPOSURE TIMING UNSPECIFIED
     Route: 064
     Dates: start: 20130601, end: 20150910
  5. AVONEX PEN [Suspect]
     Active Substance: INTERFERON BETA-1A
  6. TARDYFERRON [Concomitant]
     Indication: MATERNAL EXPOSURE TIMING UNSPECIFIED
     Route: 064
     Dates: start: 2015, end: 201605
  7. VITAMIN K [Concomitant]
     Active Substance: PHYTONADIONE
     Indication: PROPHYLAXIS
     Route: 048
  8. AVONEX [Suspect]
     Active Substance: INTERFERON BETA-1A
  9. AVONEX [Suspect]
     Active Substance: INTERFERON BETA-1A
  10. AVONEX [Suspect]
     Active Substance: INTERFERON BETA-1A
  11. AVONEX PEN [Suspect]
     Active Substance: INTERFERON BETA-1A
  12. FOLIC ACID. [Concomitant]
     Active Substance: FOLIC ACID
     Indication: MATERNAL EXPOSURE TIMING UNSPECIFIED
     Route: 064
     Dates: start: 2015, end: 2016

REACTIONS (2)
  - Congenital ovarian anomaly [Recovered/Resolved]
  - Foetal exposure during pregnancy [Recovered/Resolved]

NARRATIVE: CASE EVENT DATE: 20160503
